FAERS Safety Report 6059217-5 (Version None)
Quarter: 2009Q1

REPORT INFORMATION
  Report Type: 
  Country: None (occurrence: None)
  Receive Date: 20090128
  Receipt Date: 20090128
  Transmission Date: 20090719
  Serious: No
  Sender: FDA-Public Use
  Company Number: None

PATIENT
  Age: 38 Year
  Sex: Male
  Weight: 78.0187 kg

DRUGS (4)
  1. CHANTIX [Suspect]
     Indication: SMOKING CESSATION THERAPY
     Dosage: 1 MG BID PO
     Route: 048
     Dates: start: 20080301, end: 20090101
  2. TENOFOVIR [Concomitant]
  3. LAMIVUDINE [Concomitant]
  4. RALTEGRAVIR [Concomitant]

REACTIONS (5)
  - AGGRESSION [None]
  - DRUG DEPENDENCE [None]
  - IRRITABILITY [None]
  - LOSS OF EMPLOYMENT [None]
  - SCREAMING [None]
